FAERS Safety Report 9036965 (Version 1)
Quarter: 2013Q1

REPORT INFORMATION
  Report Type: Spontaneous
  Country: PL (occurrence: None)
  Receive Date: 20130110
  Receipt Date: 20130110
  Transmission Date: 20140127
  Serious: Yes (Other)
  Sender: FDA-Public Use
  Company Number: 2013034386

PATIENT
  Age: 57 Year
  Sex: Male

DRUGS (1)
  1. SANDOGLOBULIN [Suspect]
     Indication: IMMUNODEFICIENCY COMMON VARIABLE
     Dosage: INFUSION RATE: 10 DROPS/MIN?(NOT OTHERWISE SPECIFIED)
     Route: 042
     Dates: start: 20121207

REACTIONS (4)
  - Generalised erythema [None]
  - Hot flush [None]
  - Tachycardia [None]
  - Infusion related reaction [None]
